FAERS Safety Report 14503787 (Version 1)
Quarter: 2018Q1

REPORT INFORMATION
  Report Type: Report from Study
  Country: DE (occurrence: DE)
  Receive Date: 20180208
  Receipt Date: 20180208
  Transmission Date: 20180509
  Serious: Yes (Other)
  Sender: FDA-Public Use
  Company Number: PHHY2016DE183040

PATIENT
  Sex: Female

DRUGS (3)
  1. PAZOPANIB [Suspect]
     Active Substance: PAZOPANIB
     Dosage: 200 MG, UNK
     Route: 048
  2. PAZOPANIB [Suspect]
     Active Substance: PAZOPANIB
     Indication: PRODUCT USED FOR UNKNOWN INDICATION
     Dosage: 400 MG, UNK
     Route: 048
     Dates: start: 20150414
  3. PAZOPANIB [Suspect]
     Active Substance: PAZOPANIB
     Dosage: 200 MG, UNK
     Route: 048
     Dates: end: 20150721

REACTIONS (6)
  - Nausea [Recovered/Resolved]
  - Disease progression [Unknown]
  - Stomatitis [Recovered/Resolved]
  - Diarrhoea [Recovered/Resolved]
  - Mucosal inflammation [Recovered/Resolved]
  - Skin ulcer [Unknown]

NARRATIVE: CASE EVENT DATE: 201504
